FAERS Safety Report 4684396-1 (Version None)
Quarter: 2005Q2

REPORT INFORMATION
  Report Type: 
  Country: None (occurrence: None)
  Receive Date: 20050531
  Receipt Date: 20041206
  Transmission Date: 20051028
  Serious: Yes (Hospitalization)
  Sender: FDA-Public Use
  Company Number: USA041082452

PATIENT
  Age: 49 Year
  Sex: Female

DRUGS (5)
  1. ZYPREXA [Suspect]
     Indication: BIPOLAR DISORDER
     Dosage: 5 MG/1 DAY
     Dates: start: 20010101
  2. ZOLOFT [Concomitant]
  3. KLONOPIN [Concomitant]
  4. LITHIUM [Concomitant]
  5. COGENTIN [Concomitant]

REACTIONS (4)
  - BLEPHAROSPASM [None]
  - BRUXISM [None]
  - DEPRESSION [None]
  - THROAT IRRITATION [None]
